FAERS Safety Report 5950383-6 (Version None)
Quarter: 2008Q4

REPORT INFORMATION
  Report Type: 
  Country: None (occurrence: None)
  Receive Date: 20081112
  Receipt Date: 20081106
  Transmission Date: 20090506
  Serious: Yes (Disabling, Other)
  Sender: FDA-Public Use
  Company Number: PHHY2008BR24273

PATIENT
  Sex: Female

DRUGS (1)
  1. COMBIPATCH [Suspect]
     Indication: HORMONE THERAPY
     Dosage: 50 MCG, UNK
     Route: 062
     Dates: start: 20040101

REACTIONS (2)
  - DISABILITY [None]
  - INTERVERTEBRAL DISC PROTRUSION [None]
